FAERS Safety Report 4890301-5 (Version None)
Quarter: 2006Q1

REPORT INFORMATION
  Report Type: 
  Country: None (occurrence: None)
  Receive Date: 20060124
  Receipt Date: 20051004
  Transmission Date: 20060701
  Serious: Yes (Hospitalization, Other)
  Sender: FDA-Public Use
  Company Number: US-MERCK-0510USA02684

PATIENT
  Age: 63 Year
  Sex: Male
  Weight: 93 kg

DRUGS (4)
  1. VIOXX [Suspect]
     Indication: OSTEOARTHRITIS
     Route: 048
     Dates: start: 19991016, end: 20031017
  2. VIOXX [Suspect]
     Route: 048
     Dates: start: 19991016, end: 20031017
  3. ASPIRIN [Concomitant]
     Route: 065
  4. COUMADIN [Suspect]
     Route: 065

REACTIONS (21)
  - ACUTE MYOCARDIAL INFARCTION [None]
  - ANAEMIA [None]
  - ARTERIAL OCCLUSIVE DISEASE [None]
  - BACK DISORDER [None]
  - BACK INJURY [None]
  - CARDIAC FAILURE CONGESTIVE [None]
  - CAUDA EQUINA SYNDROME [None]
  - CHOLELITHIASIS [None]
  - CONVULSION [None]
  - CORONARY ARTERY DISEASE [None]
  - DIABETES MELLITUS [None]
  - DIZZINESS [None]
  - GASTROINTESTINAL ANGIODYSPLASIA [None]
  - GASTROINTESTINAL HAEMORRHAGE [None]
  - GASTROOESOPHAGEAL REFLUX DISEASE [None]
  - HIATUS HERNIA [None]
  - HYPERLIPIDAEMIA [None]
  - IRON DEFICIENCY ANAEMIA [None]
  - PERIPHERAL VASCULAR DISORDER [None]
  - POLYP [None]
  - SYNCOPE [None]
